FAERS Safety Report 25644084 (Version 1)
Quarter: 2025Q3

REPORT INFORMATION
  Report Type: Spontaneous
  Country: EU (occurrence: EU)
  Receive Date: 20250805
  Receipt Date: 20250805
  Transmission Date: 20251021
  Serious: Yes (Other)
  Sender: CHEPLAPHARM
  Company Number: None

PATIENT
  Age: 25 Year
  Sex: Female
  Weight: 66 kg

DRUGS (11)
  1. OLANZAPINE [Suspect]
     Active Substance: OLANZAPINE
     Indication: Psychotic disorder
     Dosage: DAILY DOSE: 15 MILLIGRAM
     Route: 048
     Dates: start: 202207, end: 20250425
  2. OLANZAPINE [Suspect]
     Active Substance: OLANZAPINE
     Indication: Psychotic disorder
     Dosage: 1 TABLET IN THE EVENING?DAILY DOSE: 5 MILLIGRAM
     Route: 048
     Dates: start: 202207
  3. OLANZAPINE [Suspect]
     Active Substance: OLANZAPINE
     Indication: Psychotic disorder
     Dosage: INCREASED TO 10 MG IN THE EVENING ?DAILY DOSE: 10 MILLIGRAM
     Route: 048
     Dates: start: 20230410
  4. OLANZAPINE [Suspect]
     Active Substance: OLANZAPINE
     Indication: Psychotic disorder
     Dosage: DECREASED TO 5 MG ?DAILY DOSE: 5 MILLIGRAM
     Route: 048
     Dates: start: 20231123
  5. OLANZAPINE [Suspect]
     Active Substance: OLANZAPINE
     Indication: Psychotic disorder
     Dosage: INCREASED TO 10 MG IN THE EVENING?DAILY DOSE: 10 MILLIGRAM
     Route: 048
     Dates: start: 20240618
  6. OLANZAPINE [Suspect]
     Active Substance: OLANZAPINE
     Indication: Psychotic disorder
     Dates: start: 202408
  7. OLANZAPINE [Suspect]
     Active Substance: OLANZAPINE
     Indication: Psychotic disorder
     Dosage: INCREASED TO 15 MG IN THE EVENING?DAILY DOSE: 15 MILLIGRAM
     Route: 048
     Dates: start: 20240911
  8. OLANZAPINE [Suspect]
     Active Substance: OLANZAPINE
     Indication: Psychotic disorder
     Dosage: DECREASED TO 10 MG IN THE EVENING?DAILY DOSE: 10 MILLIGRAM
     Route: 048
     Dates: start: 20250402
  9. OLANZAPINE [Suspect]
     Active Substance: OLANZAPINE
     Indication: Psychotic disorder
     Dosage: DECREASED TO 5 MG IN THE EVENING?DAILY DOSE: 5 MILLIGRAM
     Route: 048
     Dates: start: 20250415, end: 20250425
  10. OLANZAPINE [Suspect]
     Active Substance: OLANZAPINE
     Indication: Psychotic disorder
  11. MELATONIN [Suspect]
     Active Substance: MELATONIN
     Dates: start: 20230410

REACTIONS (1)
  - Oculogyric crisis [Unknown]

NARRATIVE: CASE EVENT DATE: 20241201
